FAERS Safety Report 20506813 (Version 2)
Quarter: 2022Q1

REPORT INFORMATION
  Report Type: Spontaneous
  Country: US (occurrence: US)
  Receive Date: 20220223
  Receipt Date: 20220314
  Transmission Date: 20220423
  Serious: Yes (Death, Hospitalization, Other)
  Sender: FDA-Public Use
  Company Number: US-PFIZER INC-202200256221

PATIENT
  Age: 18 Month
  Sex: Female
  Weight: 8.6 kg

DRUGS (2)
  1. MIDAZOLAM [Suspect]
     Active Substance: MIDAZOLAM
     Dosage: UNK
  2. NALOXONE HCL [Suspect]
     Active Substance: NALOXONE HYDROCHLORIDE
     Dosage: UNK (BOLUS AND INFUSION)

REACTIONS (3)
  - Therapeutic product effect incomplete [Fatal]
  - Cardiac arrest [Fatal]
  - Respiratory arrest [Fatal]

NARRATIVE: CASE EVENT DATE: 20200101
